FAERS Safety Report 24623199 (Version 2)
Quarter: 2025Q2

REPORT INFORMATION
  Report Type: Spontaneous
  Country: GB (occurrence: GB)
  Receive Date: 20241115
  Receipt Date: 20250620
  Transmission Date: 20250717
  Serious: Yes (Other)
  Sender: TEVA
  Company Number: None

PATIENT
  Age: 77 Year
  Sex: Female

DRUGS (3)
  1. TADALAFIL [Suspect]
     Active Substance: TADALAFIL
     Indication: Adverse drug reaction
     Route: 065
     Dates: start: 20241019
  2. BOSENTAN [Suspect]
     Active Substance: BOSENTAN
     Indication: Adverse drug reaction
     Route: 065
  3. UPTRAVI [Suspect]
     Active Substance: SELEXIPAG
     Indication: Adverse drug reaction
     Route: 065

REACTIONS (6)
  - Arthralgia [Unknown]
  - Tongue discolouration [Unknown]
  - Headache [Unknown]
  - Oral candidiasis [Unknown]
  - Dyspnoea [Unknown]
  - Dry throat [Not Recovered/Not Resolved]

NARRATIVE: CASE EVENT DATE: 20241104
